FAERS Safety Report 12728917 (Version 1)
Quarter: 2016Q3

REPORT INFORMATION
  Report Type: Spontaneous
  Country: US (occurrence: US)
  Receive Date: 20160908
  Receipt Date: 20160908
  Transmission Date: 20161109
  Serious: Yes (Disabling)
  Sender: FDA-Public Use
  Company Number: None

PATIENT
  Age: 82 Year
  Sex: Female
  Weight: 83.5 kg

DRUGS (1)
  1. ALTEPLASE [Suspect]
     Active Substance: ALTEPLASE
     Indication: ISCHAEMIC STROKE
     Dosage: OTHER
     Route: 042
     Dates: start: 20160828, end: 20160828

REACTIONS (2)
  - Haemorrhage intracranial [None]
  - Disease progression [None]

NARRATIVE: CASE EVENT DATE: 20160829
